FAERS Safety Report 6856453-2 (Version None)
Quarter: 2010Q2

REPORT INFORMATION
  Report Type: 
  Country: None (occurrence: None)
  Receive Date: 20100630
  Receipt Date: 20100301
  Transmission Date: 20101027
  Serious: No
  Sender: FDA-Public Use
  Company Number: 1000011700

PATIENT
  Sex: Female

DRUGS (3)
  1. BYSTOLIC [Suspect]
     Dosage: (20 MG)
  2. FUROSEMIDE [Suspect]
  3. EPLERENONE [Suspect]
     Indication: HYPERTENSION
     Dosage: 25 MG

REACTIONS (1)
  - ALOPECIA [None]
